FAERS Safety Report 9410293 (Version 1)
Quarter: 2013Q3

REPORT INFORMATION
  Report Type: Spontaneous
  Country: US (occurrence: US)
  Receive Date: 20130719
  Receipt Date: 20130719
  Transmission Date: 20140515
  Serious: No
  Sender: FDA-Public Use
  Company Number: US-PFIZER INC-2013212167

PATIENT
  Age: 48 Year
  Sex: Female
  Weight: 74.38 kg

DRUGS (5)
  1. NEURONTIN [Suspect]
     Indication: SCIATICA
     Dosage: 300 MG, 1X/DAY
     Route: 048
     Dates: start: 201306, end: 201306
  2. CYMBALTA [Concomitant]
     Indication: BIPOLAR I DISORDER
     Dosage: 120 MG (TAKING AS TWO TABLETS OF 60MG), 1X/DAY
  3. CYMBALTA [Concomitant]
     Indication: BIPOLAR DISORDER
  4. NEXIUM [Concomitant]
     Dosage: 40 MG, UNK
  5. AMITRIPTYLINE [Concomitant]
     Indication: MIGRAINE
     Dosage: 50 MG, UNK

REACTIONS (3)
  - Off label use [Unknown]
  - Hypersomnia [Recovered/Resolved]
  - Somnolence [Recovered/Resolved]
